FAERS Safety Report 5487884-3 (Version None)
Quarter: 2007Q4

REPORT INFORMATION
  Report Type: 
  Country: None (occurrence: None)
  Receive Date: 20071017
  Receipt Date: 20071008
  Transmission Date: 20080405
  Serious: Yes (Hospitalization)
  Sender: FDA-Public Use
  Company Number: GB-BRISTOL-MYERS SQUIBB COMPANY-13932652

PATIENT
  Age: 58 Year
  Sex: Male

DRUGS (5)
  1. DIDANOSINE [Suspect]
     Indication: HIV INFECTION
     Route: 048
  2. CLARITHROMYCIN [Suspect]
     Indication: LOWER RESPIRATORY TRACT INFECTION
     Route: 048
  3. NEVIRAPINE [Suspect]
     Indication: HIV INFECTION
     Route: 048
  4. SIMVASTATIN [Suspect]
     Indication: HYPERCHOLESTEROLAEMIA
     Route: 048
  5. ZIDOVUDINE [Suspect]
     Indication: HIV INFECTION
     Route: 048

REACTIONS (5)
  - DRUG INTERACTION [None]
  - HOMICIDAL IDEATION [None]
  - PSYCHIATRIC SYMPTOM [None]
  - PSYCHOMOTOR HYPERACTIVITY [None]
  - SUICIDAL IDEATION [None]
